FAERS Safety Report 7497856-5 (Version None)
Quarter: 2011Q2

REPORT INFORMATION
  Report Type: 
  Country: None (occurrence: None)
  Receive Date: 20110524
  Receipt Date: 20100116
  Transmission Date: 20111010
  Serious: Yes (Death, Other)
  Sender: FDA-Public Use
  Company Number: US-BAYER-201011351NA

PATIENT
  Age: 58 Year
  Sex: Male
  Weight: 82 kg

DRUGS (8)
  1. NORVASC [Concomitant]
     Route: 048
  2. LASIX [Concomitant]
     Dosage: 40 MG, UNK
     Route: 048
  3. ACETYLSALICYLIC ACID SRT [Concomitant]
     Dosage: 81 MG, QD
  4. TIAZAC [Concomitant]
     Dosage: 120 MG, QD
     Route: 048
  5. VICODIN [Concomitant]
     Route: 048
  6. CLONIDINE [Concomitant]
     Dosage: 0.3 MG, TID
     Route: 048
  7. TRASYLOL [Suspect]
     Indication: CORONARY ARTERY BYPASS
     Dates: start: 20070322
  8. TOPROL-XL [Concomitant]
     Dosage: 100 MG, QD
     Route: 048

REACTIONS (14)
  - RENAL FAILURE [None]
  - DEPRESSION [None]
  - ORGAN FAILURE [None]
  - UNEVALUABLE EVENT [None]
  - FEAR [None]
  - INJURY [None]
  - DEATH [None]
  - RENAL INJURY [None]
  - ANXIETY [None]
  - CARDIAC DISORDER [None]
  - PAIN [None]
  - CEREBROVASCULAR ACCIDENT [None]
  - RENAL IMPAIRMENT [None]
  - ANHEDONIA [None]
